FAERS Safety Report 5398010-3 (Version None)
Quarter: 2007Q3

REPORT INFORMATION
  Report Type: 
  Country: None (occurrence: None)
  Receive Date: 20070726
  Receipt Date: 20070716
  Transmission Date: 20080115
  Serious: Yes (Hospitalization)
  Sender: FDA-Public Use
  Company Number: FR-GILEAD-2007-0012681

PATIENT
  Age: 52 Year
  Sex: Male

DRUGS (4)
  1. VIREAD [Suspect]
     Indication: HIV INFECTION
     Route: 048
     Dates: start: 20020925, end: 20070313
  2. RETROVIR [Suspect]
     Indication: HIV INFECTION
     Route: 048
     Dates: end: 20070313
  3. NORVIR [Concomitant]
     Indication: HIV INFECTION
     Route: 048
     Dates: end: 20070219
  4. PREZISTA [Concomitant]
     Indication: HIV INFECTION
     Route: 048
     Dates: end: 20070219

REACTIONS (10)
  - ANOREXIA [None]
  - BLOOD LACTIC ACID INCREASED [None]
  - HEPATIC PAIN [None]
  - HEPATIC STEATOSIS [None]
  - HEPATOMEGALY [None]
  - HYPERTRIGLYCERIDAEMIA [None]
  - LACTIC ACIDOSIS [None]
  - MYALGIA [None]
  - NECK PAIN [None]
  - WEIGHT DECREASED [None]
